FAERS Safety Report 4884053-2 (Version None)
Quarter: 2006Q1

REPORT INFORMATION
  Report Type: 
  Country: None (occurrence: None)
  Receive Date: 20060117
  Receipt Date: 20060113
  Transmission Date: 20060701
  Serious: Yes (Hospitalization)
  Sender: FDA-Public Use
  Company Number: TAP2005Q02288

PATIENT
  Age: 34 Year
  Sex: Female
  Weight: 54.5 kg

DRUGS (4)
  1. LUPRON DEPOT-3 [Suspect]
     Indication: ENDOMETRIOSIS
     Dosage: 3.75 MG 1 IN 1 M INTRAMUSCULAR
     Route: 030
     Dates: start: 20051006, end: 20051215
  2. LUPRON DEPOT-3 [Suspect]
     Indication: PELVIC PAIN
     Dosage: 3.75 MG 1 IN 1 M INTRAMUSCULAR
     Route: 030
     Dates: start: 20051006, end: 20051215
  3. VICODIN [Concomitant]
  4. NORETHINDRONE (NORETHISTERONE) [Concomitant]

REACTIONS (13)
  - ABASIA [None]
  - APHASIA [None]
  - BLOOD POTASSIUM DECREASED [None]
  - CHEST PAIN [None]
  - EYE PAIN [None]
  - GUILLAIN-BARRE SYNDROME [None]
  - HEADACHE [None]
  - HYPOAESTHESIA [None]
  - MULTIPLE SCLEROSIS [None]
  - PAIN IN EXTREMITY [None]
  - PARAESTHESIA [None]
  - TREATMENT NONCOMPLIANCE [None]
  - VITAMIN B12 DECREASED [None]
